FAERS Safety Report 20883305 (Version 1)
Quarter: 2022Q2

REPORT INFORMATION
  Report Type: Other
  Country: US (occurrence: None)
  Receive Date: 20220527
  Receipt Date: 20220527
  Transmission Date: 20220721
  Serious: Yes (Hospitalization, Other)
  Sender: FDA-Public Use
  Company Number: US-ROCHE-3101285

PATIENT
  Sex: Male

DRUGS (1)
  1. ALECENSA [Suspect]
     Active Substance: ALECTINIB HYDROCHLORIDE
     Indication: Lung neoplasm malignant
     Dosage: TAKE 4 CAPSULE(S) BY MOUTH EVERY 12 HOURS WITH FOOD
     Route: 048

REACTIONS (9)
  - Brain neoplasm [Unknown]
  - Asthenia [Unknown]
  - Renal failure [Unknown]
  - Pulmonary thrombosis [Unknown]
  - Dehydration [Unknown]
  - Blood potassium decreased [Unknown]
  - Haematoma [Unknown]
  - General physical health deterioration [Unknown]
  - Bone disorder [Unknown]
